FAERS Safety Report 8822557 (Version 2)
Quarter: 2012Q4

REPORT INFORMATION
  Report Type: Report from Study
  Country: DE (occurrence: DE)
  Receive Date: 20121003
  Receipt Date: 20121124
  Transmission Date: 20130627
  Serious: Yes (Life-Threatening, Hospitalization)
  Sender: FDA-Public Use
  Company Number: DE-SANOFI-AVENTIS-2012SA065963

PATIENT
  Age: 60 Year
  Sex: Male
  Weight: 120 kg

DRUGS (10)
  1. OXALIPLATIN [Suspect]
     Indication: RECTAL CANCER
     Dosage: 50mg/m2 i.v on D1,F 29, last dose-100mg
     Route: 042
     Dates: start: 20091118, end: 20091216
  2. CAPECITABINE [Suspect]
     Indication: RECTAL CANCER
     Route: 048
     Dates: start: 20091118, end: 20091223
  3. THERAPEUTIC RADIOPHARMACEUTICALS [Suspect]
     Indication: RECTAL CANCER
     Dosage: 50,4 gy total dose, at a dose of1.8 gy per fraction
     Route: 065
     Dates: start: 20091117, end: 20091223
  4. PANTOZOL [Concomitant]
     Indication: GASTROINTESTINAL ULCER NOS
     Dosage: strength: 40 gm
     Route: 048
     Dates: start: 20100201, end: 20100325
  5. LASIX [Concomitant]
     Indication: DIURETIC THERAPY
     Dosage: strength: 20
     Route: 042
     Dates: start: 20100203, end: 20100325
  6. METFORMIN [Concomitant]
     Indication: DIABETES
     Dosage: strength: 850
     Route: 048
     Dates: start: 20100204
  7. BISOPROLOL [Concomitant]
     Indication: HYPERTENSION
     Dosage: strength: 2.5
     Route: 048
     Dates: start: 20100201
  8. FLUOXETINE [Concomitant]
     Indication: DEPRESSION
     Dosage: strength: 20
     Route: 048
     Dates: start: 20100201
  9. ENALAPRIL [Concomitant]
     Indication: HYPERTENSION
     Dosage: dose: 0-12.5-20
     Dates: start: 20100201
  10. TOREM /GFR/ [Concomitant]
     Indication: HYPERTENSION
     Route: 048
     Dates: start: 20100201

REACTIONS (1)
  - Anastomotic leak [Recovered/Resolved]
